FAERS Safety Report 6436448-3 (Version None)
Quarter: 2009Q4

REPORT INFORMATION
  Report Type: 
  Country: None (occurrence: None)
  Receive Date: 20091111
  Receipt Date: 20091030
  Transmission Date: 20100525
  Serious: Yes (Other)
  Sender: FDA-Public Use
  Company Number: JP-PFIZER INC-2009292116

PATIENT
  Age: 34 Year
  Sex: Female

DRUGS (4)
  1. MISOPROSTOL [Suspect]
     Indication: UTERINE CONTRACTIONS ABNORMAL
     Dosage: 400 UG, UNK
     Route: 054
  2. MISOPROSTOL [Suspect]
     Dosage: 400 UG, UNK
     Route: 048
  3. OXYTOCIN [Concomitant]
     Indication: UTERINE CONTRACTIONS ABNORMAL
     Route: 041
  4. LEVOTHYROXINE SODIUM [Concomitant]
     Indication: HYPOTHYROIDISM
     Route: 048

REACTIONS (6)
  - CHILLS [None]
  - CONVULSION [None]
  - DELIRIUM [None]
  - DISORIENTATION [None]
  - PYREXIA [None]
  - RESTLESSNESS [None]
